FAERS Safety Report 13610636 (Version 1)
Quarter: 2017Q2

REPORT INFORMATION
  Report Type: Spontaneous
  Country: US (occurrence: US)
  Receive Date: 20170530
  Receipt Date: 20170530
  Transmission Date: 20170830
  Serious: No
  Sender: FDA-Public Use
  Company Number: None

PATIENT
  Age: 52 Year
  Sex: Male
  Weight: 118.94 kg

DRUGS (1)
  1. NICOTINE PATCH, 21 MG [Suspect]
     Active Substance: NICOTINE
     Indication: NICOTINE DEPENDENCE
     Route: 062
     Dates: start: 20170420, end: 20170421

REACTIONS (2)
  - Burns second degree [None]
  - Wrong technique in product usage process [None]

NARRATIVE: CASE EVENT DATE: 20170421
